FAERS Safety Report 4360595-3 (Version None)
Quarter: 2004Q2

REPORT INFORMATION
  Report Type: 
  Country: None (occurrence: None)
  Receive Date: 20040519
  Receipt Date: 20030725
  Transmission Date: 20050107
  Serious: Yes (Other)
  Sender: FDA-Public Use
  Company Number: PHEH2003US06566

PATIENT
  Age: 68 Year
  Sex: Male

DRUGS (5)
  1. ZOMETA [Suspect]
     Indication: MULTIPLE MYELOMA
     Dosage: 4 MG, QMO
     Route: 042
     Dates: start: 20011101, end: 20030301
  2. EPOGEN [Concomitant]
     Indication: ANAEMIA
     Dosage: 40000 UNITS/Q2WKS
  3. PERCOCET [Concomitant]
     Indication: PAIN IN JAW
     Dosage: UNK/UNK
     Dates: start: 20030301
  4. ALKERAN [Concomitant]
     Dates: start: 20000101, end: 20030101
  5. PREDNISONE [Concomitant]
     Dosage: UNK/UNK
     Dates: start: 20000101, end: 20030101

REACTIONS (11)
  - BONE DEBRIDEMENT [None]
  - EXPLORATORY OPERATION [None]
  - OSTEOMYELITIS [None]
  - OSTEONECROSIS [None]
  - PAIN IN JAW [None]
  - PURULENT DISCHARGE [None]
  - SEQUESTRECTOMY [None]
  - SWELLING [None]
  - TOOTH DISORDER [None]
  - TOOTH EXTRACTION [None]
  - WOUND DEBRIDEMENT [None]
